FAERS Safety Report 15988641 (Version 1)
Quarter: 2019Q1

REPORT INFORMATION
  Report Type: Spontaneous
  Country: AU (occurrence: AU)
  Receive Date: 20190221
  Receipt Date: 20190221
  Transmission Date: 20190418
  Serious: Yes (Other)
  Sender: FDA-Public Use
  Company Number: AU-ABBVIE-19S-008-2666839-00

PATIENT
  Age: 10 Year

DRUGS (1)
  1. LUCRIN DEPOT [Suspect]
     Active Substance: LEUPROLIDE ACETATE
     Indication: PRODUCT USED FOR UNKNOWN INDICATION
     Route: 030

REACTIONS (4)
  - Pain [Unknown]
  - Injection site abscess [Recovering/Resolving]
  - Induration [Unknown]
  - Erythema [Unknown]

NARRATIVE: CASE EVENT DATE: 20181105
